FAERS Safety Report 14185332 (Version 1)
Quarter: 2017Q4

REPORT INFORMATION
  Report Type: Spontaneous
  Country: US (occurrence: None)
  Receive Date: 20171111
  Receipt Date: 20171111
  Transmission Date: 20180321
  Serious: No
  Sender: FDA-Public Use
  Company Number: None

PATIENT
  Sex: Female

DRUGS (1)
  1. STELARA [Suspect]
     Active Substance: USTEKINUMAB
     Indication: PSORIASIS
     Dosage: FREQUENCY - AT WEEK 0,4 THEN EVERY 12 WEEKS
     Route: 058
     Dates: start: 20171003

REACTIONS (2)
  - Rash [None]
  - Abnormal behaviour [None]
